FAERS Safety Report 10278009 (Version 1)
Quarter: 2014Q3

REPORT INFORMATION
  Report Type: Spontaneous
  Country: US (occurrence: US)
  Receive Date: 20140704
  Receipt Date: 20140704
  Transmission Date: 20150326
  Serious: No
  Sender: FDA-Public Use
  Company Number: US-009507513-1406USA005779

PATIENT
  Age: 70 Year
  Sex: Male

DRUGS (4)
  1. PROSCAR [Suspect]
     Active Substance: FINASTERIDE
     Indication: BENIGN PROSTATIC HYPERPLASIA
     Dosage: 5 MG, QD
     Route: 048
     Dates: start: 2012, end: 20140609
  2. NAPROXEN. [Concomitant]
     Active Substance: NAPROXEN
  3. TOPIRAMATE. [Concomitant]
     Active Substance: TOPIRAMATE
  4. OXYBUTYNIN [Concomitant]
     Active Substance: OXYBUTYNIN

REACTIONS (1)
  - Erectile dysfunction [Not Recovered/Not Resolved]

NARRATIVE: CASE EVENT DATE: 201212
